FAERS Safety Report 16812356 (Version 1)
Quarter: 2019Q3

REPORT INFORMATION
  Report Type: Spontaneous
  Country: BE (occurrence: BE)
  Receive Date: 20190916
  Receipt Date: 20190916
  Transmission Date: 20191005
  Serious: Yes (Other)
  Sender: FDA-Public Use
  Company Number: BE-MYLANLABS-2019M1086676

PATIENT
  Sex: Female

DRUGS (2)
  1. CARBOPLATIN. [Suspect]
     Active Substance: CARBOPLATIN
     Indication: MALIGNANT NEOPLASM OF THYMUS
     Dosage: 1 DOSAGE FORM, Q3WK (1 DF = AUC AT 6 FOR THE FIRST 3 COURSES, THEN AT 5 DUE TO TOXICITY OF THE 3RD C
     Route: 065
     Dates: start: 20180131, end: 20180523
  2. PACLITAXEL. [Suspect]
     Active Substance: PACLITAXEL
     Indication: MALIGNANT NEOPLASM OF THYMUS
     Dosage: 200 MILLIGRAM/SQ. METER, Q3WK ON DAY 1
     Route: 065
     Dates: start: 20180131, end: 20180523

REACTIONS (1)
  - Malignant neoplasm progression [Unknown]

NARRATIVE: CASE EVENT DATE: 20180910
